FAERS Safety Report 23647303 (Version 1)
Quarter: 2024Q1

REPORT INFORMATION
  Report Type: Spontaneous
  Country: US (occurrence: US)
  Receive Date: 20240319
  Receipt Date: 20240319
  Transmission Date: 20240409
  Serious: Yes (Death, Life-Threatening, Hospitalization)
  Sender: FDA-Public Use
  Company Number: None

PATIENT
  Age: 94 Year
  Sex: Female

DRUGS (5)
  1. OLANZAPINE [Suspect]
     Active Substance: OLANZAPINE
     Indication: Product used for unknown indication
  2. OLMESARTAN [Concomitant]
     Active Substance: OLMESARTAN
  3. METOPROLOL SUCCINATE [Concomitant]
     Active Substance: METOPROLOL SUCCINATE
  4. LEVOTHYROXINE [Concomitant]
     Active Substance: LEVOTHYROXINE\LEVOTHYROXINE SODIUM
  5. RIVAROXABAN [Concomitant]
     Active Substance: RIVAROXABAN

REACTIONS (5)
  - Cardiac arrest [Fatal]
  - Septic shock [Unknown]
  - Acidosis [Unknown]
  - Colitis ischaemic [Unknown]
  - Urinary retention [Unknown]
